FAERS Safety Report 21314531 (Version 1)
Quarter: 2022Q3

REPORT INFORMATION
  Report Type: Spontaneous
  Country: US (occurrence: US)
  Receive Date: 20220909
  Receipt Date: 20220909
  Transmission Date: 20221027
  Serious: Yes (Hospitalization)
  Sender: FDA-Public Use
  Company Number: US-PFIZER INC-202201135298

PATIENT
  Age: 75 Year
  Sex: Male
  Weight: 72.57 kg

DRUGS (9)
  1. METHYLPREDNISOLONE [Suspect]
     Active Substance: METHYLPREDNISOLONE
     Indication: Swelling
     Dosage: 16 MG (PUT ON A QUITE HIGH DOSE)
     Route: 048
     Dates: start: 20220810
  2. METHYLPREDNISOLONE [Suspect]
     Active Substance: METHYLPREDNISOLONE
     Dosage: TOOK 6 TABLETS, 5 TABLETS, 4 TABLETS, 3 TABLETS, 2 TABLETS, 1 TABLET BY MOUTH
     Route: 048
     Dates: start: 20220817, end: 20220822
  3. RANEXA [Concomitant]
     Active Substance: RANOLAZINE
     Indication: Heart rate
     Dosage: 1000 MG, 2X/DAY
     Route: 048
  4. ASPIRIN [Concomitant]
     Active Substance: ASPIRIN
     Indication: Anticoagulant therapy
     Dosage: 81 MG, 1X/DAY
     Route: 048
     Dates: start: 2022, end: 20220810
  5. ASPIRIN [Concomitant]
     Active Substance: ASPIRIN
     Dosage: 81 MG, 1X/DAY
     Route: 048
     Dates: start: 2022
  6. PRAVASTATIN [Concomitant]
     Active Substance: PRAVASTATIN
     Dosage: 80 MG
     Route: 048
  7. PRAVASTATIN [Concomitant]
     Active Substance: PRAVASTATIN
     Dosage: 40 MG
     Route: 048
     Dates: start: 20220831
  8. PANTOPRAZOLE [Concomitant]
     Active Substance: PANTOPRAZOLE
     Indication: Gastrooesophageal reflux disease
     Dosage: 40 MG, 1X/DAY
     Route: 048
     Dates: start: 2021
  9. HYGROTON [Concomitant]
     Active Substance: CHLORTHALIDONE
     Indication: Diuretic therapy
     Dosage: 25 MG
     Dates: start: 20211102

REACTIONS (4)
  - Pancreatitis acute [Recovering/Resolving]
  - Sleep deficit [Unknown]
  - Therapeutic response unexpected [Unknown]
  - Off label use [Unknown]

NARRATIVE: CASE EVENT DATE: 20220801
